FAERS Safety Report 10230252 (Version 1)
Quarter: 2014Q2

REPORT INFORMATION
  Report Type: Spontaneous
  Country: US (occurrence: None)
  Receive Date: 20140610
  Receipt Date: 20140610
  Transmission Date: 20141212
  Serious: Yes (Other)
  Sender: FDA-Public Use
  Company Number: None

PATIENT
  Age: 17 Year
  Sex: Male
  Weight: 63.96 kg

DRUGS (2)
  1. DEPAKOTE [Suspect]
     Indication: EPILEPSY
     Dosage: T, BID, PO?
     Route: 048
     Dates: start: 20080602
  2. DEPAKOTE [Suspect]
     Indication: CEREBRAL PALSY
     Dosage: T, BID, PO?
     Route: 048
     Dates: start: 20080602

REACTIONS (2)
  - Epilepsy [None]
  - Product substitution issue [None]
